APPROVED DRUG PRODUCT: LIDOCAINE
Active Ingredient: LIDOCAINE
Strength: 5%
Dosage Form/Route: OINTMENT;TOPICAL
Application: A212486 | Product #001
Applicant: GENEYORK PHARMACEUTICALS GROUP LLC
Approved: Oct 17, 2019 | RLD: No | RS: No | Type: DISCN